FAERS Safety Report 8459741-1 (Version None)
Quarter: 2012Q2

REPORT INFORMATION
  Report Type: 
  Country: None (occurrence: None)
  Receive Date: 20120622
  Receipt Date: 20120615
  Transmission Date: 20120825
  Serious: Yes (Hospitalization, Disabling, Other)
  Sender: FDA-Public Use
  Company Number: US-MERCK-1203USA03369

PATIENT
  Age: 49 Year
  Sex: Female
  Weight: 80 kg

DRUGS (11)
  1. FOSAMAX [Suspect]
     Indication: OSTEOPOROSIS
     Route: 048
     Dates: start: 20020701, end: 20110601
  2. BONIVA [Suspect]
     Indication: OSTEOPENIA
     Route: 048
     Dates: start: 19960101, end: 20110630
  3. FOSAMAX [Suspect]
     Route: 048
     Dates: start: 20020701, end: 20110601
  4. VITAMINS (UNSPECIFIED) [Concomitant]
     Dosage: 25 YRS
     Route: 065
  5. ALENDRONATE SODIUM [Suspect]
     Route: 048
     Dates: start: 20080218, end: 20100601
  6. HORMONES (UNSPECIFIED) [Concomitant]
     Route: 065
     Dates: start: 19990101, end: 20070901
  7. FOSAMAX [Suspect]
     Indication: OSTEOPENIA
     Route: 048
     Dates: start: 20020702, end: 20100614
  8. CALCIUM (UNSPECIFIED) [Concomitant]
     Route: 065
  9. BONIVA [Suspect]
     Indication: SCOLIOSIS
     Route: 048
     Dates: start: 19960101, end: 20110630
  10. FOSAMAX [Suspect]
     Indication: SCOLIOSIS
     Route: 048
     Dates: start: 20020702, end: 20100614
  11. OMEPRAZOLE [Concomitant]
     Dosage: TO PRESENT
     Route: 065
     Dates: start: 20020101

REACTIONS (42)
  - ADENOIDAL DISORDER [None]
  - JOINT SWELLING [None]
  - HYPERTENSION [None]
  - PLANTAR FASCIITIS [None]
  - EXOSTOSIS [None]
  - FEMUR FRACTURE [None]
  - OSTEOPOROSIS [None]
  - TONSILLAR DISORDER [None]
  - JOINT EFFUSION [None]
  - KYPHOSIS [None]
  - HYPERCHOLESTEROLAEMIA [None]
  - GASTROOESOPHAGEAL REFLUX DISEASE [None]
  - DEEP VEIN THROMBOSIS [None]
  - BENIGN BREAST NEOPLASM [None]
  - NASOPHARYNGITIS [None]
  - PARAESTHESIA [None]
  - HIATUS HERNIA [None]
  - DRUG INEFFECTIVE [None]
  - MUSCLE SPASMS [None]
  - UTERINE DISORDER [None]
  - IRRITABLE BOWEL SYNDROME [None]
  - FIBROCYSTIC BREAST DISEASE [None]
  - TINNITUS [None]
  - ATRIAL FIBRILLATION [None]
  - STRESS FRACTURE [None]
  - DRUG HYPERSENSITIVITY [None]
  - VENOUS INSUFFICIENCY [None]
  - NASAL CONGESTION [None]
  - INTERNATIONAL NORMALISED RATIO INCREASED [None]
  - LIP DRY [None]
  - FACIAL PAIN [None]
  - IMPAIRED HEALING [None]
  - TOOTHACHE [None]
  - SINUSITIS [None]
  - OFF LABEL USE [None]
  - LOW TURNOVER OSTEOPATHY [None]
  - DIZZINESS [None]
  - FATIGUE [None]
  - URINARY TRACT INFECTION [None]
  - PRODUCTIVE COUGH [None]
  - GOITRE [None]
  - LIMB DISCOMFORT [None]
